FAERS Safety Report 20773311 (Version 1)
Quarter: 2022Q2

REPORT INFORMATION
  Report Type: Spontaneous
  Country: CN (occurrence: CN)
  Receive Date: 20220502
  Receipt Date: 20220502
  Transmission Date: 20220721
  Serious: Yes (Hospitalization, Other)
  Sender: FDA-Public Use
  Company Number: None

PATIENT
  Age: 42 Year
  Sex: Female
  Weight: 52.9 kg

DRUGS (7)
  1. OLANZAPINE [Suspect]
     Active Substance: OLANZAPINE
     Indication: Schizophrenia
     Dosage: 5MG,BID
     Route: 048
     Dates: start: 20220310
  2. OLANZAPINE [Suspect]
     Active Substance: OLANZAPINE
     Dosage: DOSE OF OLANZAPINE WAS ADJUSTED TO 5 MG 0-2-2
     Route: 048
     Dates: start: 20220325
  3. OLANZAPINE [Suspect]
     Active Substance: OLANZAPINE
     Dosage: ON 31-MAR-2022, OLANZAPINE WAS GRADUALLY REDUCED TO 10 MG/DAY,
     Route: 048
     Dates: start: 20220331
  4. OLANZAPINE [Suspect]
     Active Substance: OLANZAPINE
     Dosage: ON 18-APR-2022, THE PATIENT WAS TOLD TO REDUCE THE DOSE OF OLANZAPINE TO 5 MG 0-2-0
     Route: 048
     Dates: start: 20220418, end: 20220422
  5. RISPERIDONE [Concomitant]
     Active Substance: RISPERIDONE
     Indication: Schizophrenia
     Dosage: 1MG,QD
     Route: 048
     Dates: start: 20220310
  6. RISPERIDONE [Concomitant]
     Active Substance: RISPERIDONE
     Dosage: ON 31-MAR-2022, OLANZAPINE WAS GRADUALLY REDUCED TO 10 MG/DAY AND THE DOSE OF RISPERIDONE WAS INCREA
     Route: 048
     Dates: start: 20220331, end: 20220418
  7. RISPERIDONE [Concomitant]
     Active Substance: RISPERIDONE
     Dosage: INCREASE THE DOSE OF RISPERIDONE TO 1 MG 0-1-3 FOR TREATMENT.
     Route: 048
     Dates: start: 20220418

REACTIONS (1)
  - Extrapyramidal disorder [Recovered/Resolved]

NARRATIVE: CASE EVENT DATE: 20220330
